FAERS Safety Report 22340226 (Version 1)
Quarter: 2023Q2

REPORT INFORMATION
  Report Type: Report from Study
  Country: US (occurrence: US)
  Receive Date: 20230518
  Receipt Date: 20230518
  Transmission Date: 20230721
  Serious: Yes (Other)
  Sender: FDA-Public Use
  Company Number: US-JAZZ PHARMACEUTICALS-2023-US-007513

PATIENT
  Sex: Female

DRUGS (2)
  1. SODIUM OXYBATE [Suspect]
     Active Substance: SODIUM OXYBATE
     Indication: Narcolepsy
     Dosage: UNK
  2. TOPIRAMATE [Concomitant]
     Active Substance: TOPIRAMATE
     Indication: Migraine
     Dosage: 0000
     Dates: start: 20180201

REACTIONS (5)
  - Neuropathy peripheral [Unknown]
  - Hyperthyroidism [Unknown]
  - Obesity [Unknown]
  - Osteoarthritis [Unknown]
  - Sciatica [Unknown]
